FAERS Safety Report 8200813-4 (Version None)
Quarter: 2012Q1

REPORT INFORMATION
  Report Type: 
  Country: None (occurrence: None)
  Receive Date: 20120307
  Receipt Date: 20120220
  Transmission Date: 20120608
  Serious: Yes (Hospitalization)
  Sender: FDA-Public Use
  Company Number: 0226034

PATIENT

DRUGS (6)
  1. TACHOSIL [Suspect]
     Indication: HAEMOSTASIS
     Dosage: 2 DOSAGE FORMS
     Dates: start: 20110607
  2. BISOPROLOL FUMARATE [Concomitant]
  3. OMEPRAZOLE (OMEPRAZOLE) (20 MILLIGRAM) [Concomitant]
  4. ASPIRIN [Concomitant]
  5. ZOCOR [Concomitant]
  6. ZESTRIL [Concomitant]

REACTIONS (5)
  - POSTOPERATIVE THORACIC PROCEDURE COMPLICATION [None]
  - OFF LABEL USE [None]
  - SUBCUTANEOUS ABSCESS [None]
  - IMPAIRED HEALING [None]
  - STAPHYLOCOCCUS TEST POSITIVE [None]
